FAERS Safety Report 20788113 (Version 1)
Quarter: 2022Q2

REPORT INFORMATION
  Report Type: Spontaneous
  Country: US (occurrence: None)
  Receive Date: 20220505
  Receipt Date: 20220505
  Transmission Date: 20220720
  Serious: No
  Sender: FDA-Public Use
  Company Number: US-ROCHE-2942880

PATIENT
  Age: 66 Year
  Sex: Female
  Weight: 90.664 kg

DRUGS (4)
  1. OCREVUS [Suspect]
     Active Substance: OCRELIZUMAB
     Indication: Relapsing-remitting multiple sclerosis
     Dosage: HALF DOSES 2 WEEKS APART
     Route: 042
     Dates: start: 20211018
  2. BLOOD PRESSURE MEDICATION (UNK INGREDIENTS) [Concomitant]
     Indication: Blood pressure measurement
  3. ANTIDEPRESSANT (UNK INGREDIENTS) [Concomitant]
  4. CHOLESTEROL MEDICATION (UNK INGREDIENTS) [Concomitant]
     Indication: Metabolic syndrome

REACTIONS (9)
  - Headache [Recovered/Resolved]
  - Heart rate increased [Not Recovered/Not Resolved]
  - Feeling jittery [Not Recovered/Not Resolved]
  - Insomnia [Unknown]
  - Vomiting [Recovered/Resolved]
  - Nausea [Not Recovered/Not Resolved]
  - Diarrhoea [Recovered/Resolved]
  - Fatigue [Unknown]
  - Weight decreased [Not Recovered/Not Resolved]

NARRATIVE: CASE EVENT DATE: 20211018
